FAERS Safety Report 19177503 (Version 1)
Quarter: 2021Q2

REPORT INFORMATION
  Report Type: Spontaneous
  Country: CA (occurrence: CA)
  Receive Date: 20210425
  Receipt Date: 20210425
  Transmission Date: 20210717
  Serious: Yes (Other)
  Sender: FDA-Public Use
  Company Number: CA-JNJFOC-20210443104

PATIENT
  Age: 70 Year

DRUGS (11)
  1. MONTELUKAST [Concomitant]
     Active Substance: MONTELUKAST SODIUM
  2. INFLIXIMAB, RECOMBINANT [Suspect]
     Active Substance: INFLIXIMAB
     Indication: COLITIS ULCERATIVE
     Route: 042
  3. ALENDRONATE SODIUM. [Concomitant]
     Active Substance: ALENDRONATE SODIUM
  4. ALVESCO [Concomitant]
     Active Substance: CICLESONIDE
  5. PREDNISONE. [Concomitant]
     Active Substance: PREDNISONE
  6. MEZAVANT [Concomitant]
     Active Substance: MESALAMINE
     Dosage: DELAYED AND EXTENDED RELEASE
  7. SPIRIVA [Concomitant]
     Active Substance: TIOTROPIUM BROMIDE MONOHYDRATE
  8. TAMSULOSIN CR [Concomitant]
     Active Substance: TAMSULOSIN
  9. COLECALCIFEROL [Concomitant]
     Active Substance: CHOLECALCIFEROL
  10. DUTASTERIDE. [Concomitant]
     Active Substance: DUTASTERIDE
  11. PANTOPRAZOLE [Concomitant]
     Active Substance: PANTOPRAZOLE

REACTIONS (1)
  - Glaucoma [Unknown]
